FAERS Safety Report 6622887-4 (Version None)
Quarter: 2010Q1

REPORT INFORMATION
  Report Type: 
  Country: None (occurrence: None)
  Receive Date: 20100310
  Receipt Date: 20091230
  Transmission Date: 20100710
  Serious: No
  Sender: FDA-Public Use
  Company Number: US-BIOGENIDEC-2009BI042350

PATIENT
  Age: 53 Year
  Sex: Male
  Weight: 124 kg

DRUGS (4)
  1. AVONEX [Suspect]
     Indication: MULTIPLE SCLEROSIS
     Route: 030
     Dates: start: 19970601, end: 20070101
  2. AVONEX [Suspect]
     Route: 030
     Dates: start: 20070101, end: 20070101
  3. AVONEX [Suspect]
     Route: 030
     Dates: start: 20070101
  4. UNKNOWN ANTIDEPRESSANTS [Concomitant]
     Indication: DEPRESSION

REACTIONS (23)
  - ABASIA [None]
  - BACK PAIN [None]
  - BREATH SOUNDS ABNORMAL [None]
  - CONFUSIONAL STATE [None]
  - COORDINATION ABNORMAL [None]
  - DECUBITUS ULCER [None]
  - DEPRESSION [None]
  - DYSARTHRIA [None]
  - HEADACHE [None]
  - HERPES ZOSTER [None]
  - HYPERTENSION [None]
  - INFLUENZA LIKE ILLNESS [None]
  - INSOMNIA [None]
  - MOBILITY DECREASED [None]
  - MULTIPLE SCLEROSIS RELAPSE [None]
  - NEURALGIA [None]
  - OEDEMA [None]
  - PAIN [None]
  - PNEUMONIA [None]
  - POOR PERIPHERAL CIRCULATION [None]
  - PRURITUS [None]
  - TRANSIENT ISCHAEMIC ATTACK [None]
  - URINARY INCONTINENCE [None]
